FAERS Safety Report 8114936-1 (Version None)
Quarter: 2012Q1

REPORT INFORMATION
  Report Type: 
  Country: None (occurrence: None)
  Receive Date: 20120206
  Receipt Date: 20120129
  Transmission Date: 20120608
  Serious: Yes (Hospitalization)
  Sender: FDA-Public Use
  Company Number: AT-JNJFOC-20120200415

PATIENT
  Sex: Male

DRUGS (3)
  1. ALCOHOL [Suspect]
     Indication: PRODUCT USED FOR UNKNOWN INDICATION
     Route: 065
  2. RISPERDAL CONSTA [Suspect]
     Indication: AFFECTIVE DISORDER
     Dosage: 50 (UNITS UNSPECIFIED) EVERY 4 WEEKS
     Route: 030
  3. RISPERDAL CONSTA [Suspect]
     Dosage: 15-JUL
     Route: 030
     Dates: start: 20110715

REACTIONS (10)
  - AMNESIA [None]
  - DELIRIUM [None]
  - CONFUSIONAL STATE [None]
  - THINKING ABNORMAL [None]
  - DYSCALCULIA [None]
  - ALTERED STATE OF CONSCIOUSNESS [None]
  - HYPOGLYCAEMIA [None]
  - UNRESPONSIVE TO STIMULI [None]
  - RESTLESSNESS [None]
  - DISORIENTATION [None]
